FAERS Safety Report 24040775 (Version 2)
Quarter: 2024Q3

REPORT INFORMATION
  Report Type: Report from Study
  Country: IT (occurrence: IT)
  Receive Date: 20240702
  Receipt Date: 20240816
  Transmission Date: 20241017
  Serious: Yes (Life-Threatening, Other)
  Sender: JAZZ
  Company Number: IT-JAZZ-2024-IT-009710

PATIENT

DRUGS (2)
  1. VYXEOS [Suspect]
     Active Substance: CYTARABINE\DAUNORUBICIN
     Indication: Acute myeloid leukaemia
     Dosage: 77.88MG /100 MG DAY 1,3,5
     Route: 042
     Dates: start: 20240607, end: 20240611
  2. LINEZOLID [Concomitant]
     Active Substance: LINEZOLID
     Indication: Product used for unknown indication

REACTIONS (3)
  - Pneumonia bacterial [Recovering/Resolving]
  - Myelosuppression [Not Recovered/Not Resolved]
  - Stomatitis [Recovering/Resolving]

NARRATIVE: CASE EVENT DATE: 20240618
